FAERS Safety Report 14944119 (Version 1)
Quarter: 2018Q2

REPORT INFORMATION
  Report Type: Spontaneous
  Country: DE (occurrence: DE)
  Receive Date: 20180528
  Receipt Date: 20180528
  Transmission Date: 20180711
  Serious: Yes (Hospitalization, Other)
  Sender: FDA-Public Use
  Company Number: DE-ELI_LILLY_AND_COMPANY-DE201805012478

PATIENT
  Age: 67 Year
  Sex: Male

DRUGS (3)
  1. ERBITUX [Suspect]
     Active Substance: CETUXIMAB
     Indication: OROPHARYNGEAL CANCER RECURRENT
     Dosage: 250 MG/M2, UNKNOWN
     Route: 065
     Dates: start: 201509, end: 201511
  2. 5-FU                               /00098801/ [Concomitant]
     Active Substance: FLUOROURACIL
     Indication: OROPHARYNGEAL CANCER RECURRENT
     Dosage: UNK UNK, UNKNOWN
     Route: 065
     Dates: start: 201509, end: 201511
  3. CISPLATIN. [Concomitant]
     Active Substance: CISPLATIN
     Indication: OROPHARYNGEAL CANCER RECURRENT
     Dosage: UNK UNK, UNKNOWN
     Route: 065
     Dates: start: 201509, end: 201511

REACTIONS (7)
  - Intervertebral discitis [Unknown]
  - Drug intolerance [Unknown]
  - Staphylococcal infection [Unknown]
  - Bone disorder [Unknown]
  - General physical health deterioration [Unknown]
  - Pneumonia [Unknown]
  - Staphylococcal abscess [Unknown]

NARRATIVE: CASE EVENT DATE: 2015
